FAERS Safety Report 6826217-4 (Version None)
Quarter: 2010Q3

REPORT INFORMATION
  Report Type: 
  Country: None (occurrence: None)
  Receive Date: 20100709
  Receipt Date: 20100628
  Transmission Date: 20110219
  Serious: Yes (Hospitalization)
  Sender: FDA-Public Use
  Company Number: US-BRISTOL-MYERS SQUIBB COMPANY-15168065

PATIENT
  Age: 53 Year
  Sex: Male

DRUGS (6)
  1. EFAVIRENZ [Suspect]
     Indication: ANTIRETROVIRAL THERAPY
  2. TRIMETHOPRIM + SULFAMETHOXAZOLE [Suspect]
     Indication: PROPHYLACTIC CHEMOTHERAPY
  3. EMTRICITABINE [Suspect]
     Indication: ANTIRETROVIRAL THERAPY
  4. TENOFOVIR [Suspect]
     Indication: ANTIRETROVIRAL THERAPY
  5. INDOMETHACIN [Suspect]
     Indication: GOUT
     Dosage: FOR MAXIMUN OF 5 DOSES A DAY
  6. COLCHICINE [Suspect]
     Indication: GOUT

REACTIONS (2)
  - IMMUNE RECONSTITUTION SYNDROME [None]
  - RENAL FAILURE ACUTE [None]
